FAERS Safety Report 7811025-8 (Version None)
Quarter: 2011Q4

REPORT INFORMATION
  Report Type: 
  Country: None (occurrence: None)
  Receive Date: 20111011
  Receipt Date: 20110927
  Transmission Date: 20120403
  Serious: Yes (Other)
  Sender: FDA-Public Use
  Company Number: FK201102036

PATIENT

DRUGS (1)
  1. NEOSTIGMINE METHLYSULFATE INJECTION, USP (NEOSTIGMINE METHYLSULFATE) ( [Suspect]
     Indication: PRODUCT USED FOR UNKNOWN INDICATION
     Dosage: 0.4 MG, INTRAVENOUS (NOT OTHERWISE SPECIFIED)

REACTIONS (1)
  - ATRIOVENTRICULAR BLOCK SECOND DEGREE [None]
